FAERS Safety Report 5927900-5 (Version None)
Quarter: 2008Q4

REPORT INFORMATION
  Report Type: 
  Country: None (occurrence: None)
  Receive Date: 20081022
  Receipt Date: 20081022
  Transmission Date: 20090506
  Serious: No
  Sender: FDA-Public Use
  Company Number: None

PATIENT
  Sex: Male
  Weight: 84.369 kg

DRUGS (12)
  1. EZETIMIBE [Suspect]
     Indication: HYPERCHOLESTEROLAEMIA
     Dosage: 10MG ONCE DAILY PO
     Route: 048
     Dates: start: 20080624, end: 20081020
  2. ISRADIPINE [Concomitant]
  3. NIACIN [Concomitant]
  4. TOPROL-XL [Concomitant]
  5. OMEPRAZOLE [Concomitant]
  6. FLUTICASONE PROPIONATE [Concomitant]
  7. DUTASTERIDE [Concomitant]
  8. FLOMAX [Concomitant]
  9. LEVITRA [Concomitant]
  10. K-DUR [Concomitant]
  11. HYDROCHLOROTHIAZIDE [Concomitant]
  12. ASPIRIN [Concomitant]

REACTIONS (4)
  - ARTHRALGIA [None]
  - ASTHENIA [None]
  - BACK PAIN [None]
  - PAIN IN EXTREMITY [None]
